FAERS Safety Report 18272464 (Version 5)
Quarter: 2021Q2

REPORT INFORMATION
  Report Type: Report from Study
  Country: CO (occurrence: CO)
  Receive Date: 20200916
  Receipt Date: 20210630
  Transmission Date: 20210717
  Serious: Yes (Other)
  Sender: FDA-Public Use
  Company Number: CO-BAYER-2020-011375

PATIENT
  Age: 63 Year
  Sex: Female

DRUGS (17)
  1. NEXAVAR [Suspect]
     Active Substance: SORAFENIB
     Indication: THYROID CANCER
     Dosage: 200 MG, BID
     Dates: start: 20180623
  2. DENOSUMAB [Concomitant]
     Active Substance: DENOSUMAB
     Indication: OSTEOPOROSIS
     Dosage: UNK
     Dates: start: 20180126
  3. CALCIUM [Concomitant]
     Active Substance: CALCIUM
     Indication: NUTRITIONAL SUPPLEMENTATION
     Dosage: UNK
  4. DENOSUMAB [Concomitant]
     Active Substance: DENOSUMAB
     Indication: OSTEOPOROSIS
  5. ATORVASTATIN [Concomitant]
     Active Substance: ATORVASTATIN
     Indication: HYPERCHOLESTEROLAEMIA
  6. MAGNESIUM HYDROXIDE. [Concomitant]
     Active Substance: MAGNESIUM HYDROXIDE
  7. CALCITRIOL. [Concomitant]
     Active Substance: CALCITRIOL
  8. LEVOTHYROXINE. [Concomitant]
     Active Substance: LEVOTHYROXINE
     Indication: THYROID CANCER
  9. PARACETAMOL [Concomitant]
     Active Substance: ACETAMINOPHEN
     Indication: PAIN
     Dosage: UNK
  10. AMLODIPINE [Concomitant]
     Active Substance: AMLODIPINE BESYLATE
     Indication: HYPERTENSION
  11. VITAMIN D [VITAMIN D NOS] [Concomitant]
     Active Substance: VITAMIN D NOS
     Dosage: UNK
  12. ATORVASTATIN [Concomitant]
     Active Substance: ATORVASTATIN
     Indication: HYPERCHOLESTEROLAEMIA
     Dosage: UNK
  13. ACETAMINOPHEN. [Concomitant]
     Active Substance: ACETAMINOPHEN
  14. CITRAGEL [Concomitant]
  15. LEVOTHYROXINE. [Concomitant]
     Active Substance: LEVOTHYROXINE
     Indication: THYROID CANCER
     Dosage: UNK
  16. PARACETAMOL [Concomitant]
     Active Substance: ACETAMINOPHEN
     Indication: PAIN
  17. AMLODIPINE [Concomitant]
     Active Substance: AMLODIPINE BESYLATE
     Indication: HYPERTENSION
     Dosage: UNK

REACTIONS (26)
  - Oropharyngeal pain [None]
  - Decreased appetite [Recovering/Resolving]
  - Postoperative wound infection [Recovering/Resolving]
  - Burning sensation [Not Recovered/Not Resolved]
  - Influenza [Recovering/Resolving]
  - Back injury [None]
  - Eating disorder [None]
  - Dizziness [None]
  - Tonsillitis [Recovering/Resolving]
  - Cough [Not Recovered/Not Resolved]
  - Post procedural discharge [Recovering/Resolving]
  - Weight decreased [Not Recovered/Not Resolved]
  - Oropharyngeal pain [Recovering/Resolving]
  - Benign neoplasm [Not Recovered/Not Resolved]
  - Weight decreased [None]
  - Oropharyngeal pain [Recovering/Resolving]
  - Dyspnoea [Recovering/Resolving]
  - Diarrhoea [Recovering/Resolving]
  - Fall [None]
  - Pain [Not Recovered/Not Resolved]
  - Off label use [None]
  - Tonsillar inflammation [None]
  - Decreased appetite [Recovering/Resolving]
  - Oropharyngeal pain [Recovering/Resolving]
  - Pyrexia [Recovering/Resolving]
  - Influenza like illness [Recovering/Resolving]

NARRATIVE: CASE EVENT DATE: 20180623
